FAERS Safety Report 8972521 (Version 1)
Quarter: 2012Q4

REPORT INFORMATION
  Report Type: Report from Study
  Country: CA (occurrence: CA)
  Receive Date: 20121218
  Receipt Date: 20121218
  Transmission Date: 20130627
  Serious: Yes (Other)
  Sender: FDA-Public Use
  Company Number: CA-ROCHE-1167365

PATIENT
  Sex: Female

DRUGS (2)
  1. OMALIZUMAB [Suspect]
     Indication: ASTHMA
     Route: 065
     Dates: start: 20070306
  2. OMALIZUMAB [Suspect]
     Route: 065
     Dates: start: 20071022

REACTIONS (2)
  - Hypersensitivity [Unknown]
  - Dyspnoea [Unknown]
